FAERS Safety Report 9777584 (Version 5)
Quarter: 2014Q2

REPORT INFORMATION
  Report Type: Spontaneous
  Country: FI (occurrence: FI)
  Receive Date: 20131222
  Receipt Date: 20140527
  Transmission Date: 20141212
  Serious: Yes (Other)
  Sender: FDA-Public Use
  Company Number: FI-SA-2013SA128611

PATIENT
  Sex: Male

DRUGS (11)
  1. LEMTRADA [Suspect]
     Indication: MULTIPLE SCLEROSIS
     Route: 042
     Dates: start: 20131209, end: 20131213
  2. SOLU-MEDROL [Concomitant]
     Indication: PREMEDICATION
     Route: 042
     Dates: start: 20131209, end: 20131211
  3. PREDNISOLONE [Concomitant]
     Indication: URTICARIA
     Route: 048
     Dates: start: 20131213, end: 20131213
  4. CETIRIZINE DIHYDROCHLORIDE [Concomitant]
     Indication: PREMEDICATION
     Dates: start: 20131209, end: 20131213
  5. PANADOL [Concomitant]
     Indication: PREMEDICATION
     Dates: start: 20131209, end: 20131213
  6. CALCICHEW [Concomitant]
  7. CANDESARTAN [Concomitant]
  8. EFEXOR [Concomitant]
  9. TRIMOPAN [Concomitant]
  10. VALACICLOVIR HYDROCHLORIDE [Concomitant]
  11. VITAMIN D [Concomitant]

REACTIONS (10)
  - Pyrexia [Recovered/Resolved]
  - Headache [Recovered/Resolved]
  - Muscle spasticity [Recovered/Resolved]
  - Oropharyngeal pain [Recovered/Resolved]
  - Thrombocytopenia [Recovered/Resolved]
  - Lymphocyte count decreased [Recovered/Resolved]
  - Fatigue [Recovered/Resolved]
  - Urticaria [Recovered/Resolved]
  - Arthralgia [Not Recovered/Not Resolved]
  - Tendonitis [Not Recovered/Not Resolved]
